FAERS Safety Report 8881020 (Version 2)
Quarter: 2012Q4

REPORT INFORMATION
  Report Type: 
  Country: US (occurrence: US)
  Receive Date: 20121101
  Receipt Date: 20121106
  Transmission Date: 20130627
  Serious: Yes (Other)
  Sender: FDA-Public Use
  Company Number: US-WATSON-2012-18234

PATIENT
  Age: 25 Year
  Sex: Female

DRUGS (1)
  1. DOXYCYCLINE HYCLATE [Suspect]
     Indication: LYME DISEASE
     Dosage: 100 mg, bid
     Route: 048

REACTIONS (5)
  - Odynophagia [Recovered/Resolved]
  - Abdominal pain upper [Recovered/Resolved]
  - Gastritis erosive [Recovered/Resolved]
  - Oesophagitis [Recovered/Resolved]
  - Drug administration error [Not Recovered/Not Resolved]
